FAERS Safety Report 17994649 (Version 1)
Quarter: 2020Q3

REPORT INFORMATION
  Report Type: Spontaneous
  Country: ES (occurrence: ES)
  Receive Date: 20200708
  Receipt Date: 20200708
  Transmission Date: 20201103
  Serious: Yes (Other)
  Sender: FDA-Public Use
  Company Number: ES-PFIZER INC-2020260067

PATIENT
  Age: 73 Year
  Sex: Female

DRUGS (5)
  1. AMOXICILLIN/CLAVULANIC ACID [Suspect]
     Active Substance: AMOXICILLIN\CLAVULANIC ACID
     Dosage: 2 GRAM, Q8HR
     Route: 042
     Dates: start: 20200602, end: 20200610
  2. NIMODIPINO [Suspect]
     Active Substance: NIMODIPINE
     Dosage: UNK
     Route: 042
     Dates: start: 20200602, end: 20200610
  3. FUROSEMIDA [FUROSEMIDE] [Suspect]
     Active Substance: FUROSEMIDE
     Dosage: 10 MILLIGRAM, Q12H
     Route: 042
     Dates: start: 20200604
  4. PANTOPRAZOLE [Suspect]
     Active Substance: PANTOPRAZOLE
     Dosage: UNK
     Route: 042
     Dates: start: 20200602, end: 20200611
  5. PARACETAMOL [Concomitant]
     Active Substance: ACETAMINOPHEN
     Dosage: 1 GRAM, Q8HR
     Route: 042
     Dates: start: 20200602

REACTIONS (1)
  - Mixed liver injury [Recovered/Resolved]

NARRATIVE: CASE EVENT DATE: 20200608
